FAERS Safety Report 7801748-9 (Version None)
Quarter: 2011Q4

REPORT INFORMATION
  Report Type: 
  Country: None (occurrence: None)
  Receive Date: 20111004
  Receipt Date: 20110110
  Transmission Date: 20120403
  Serious: Yes (Hospitalization)
  Sender: FDA-Public Use
  Company Number: 2011GW000009

PATIENT
  Age: 82 Year
  Sex: Female
  Weight: 61.2356 kg

DRUGS (3)
  1. PULMICORT [Suspect]
     Indication: CHRONIC OBSTRUCTIVE PULMONARY DISEASE
     Dosage: BID;INH
     Route: 055
  2. ALBUTEROL [Suspect]
     Indication: CHRONIC OBSTRUCTIVE PULMONARY DISEASE
     Dosage: QID;INH
     Route: 055
  3. MAXAIR [Suspect]
     Indication: CHRONIC OBSTRUCTIVE PULMONARY DISEASE
     Dosage: 400 UG;QID;INH
     Route: 055
     Dates: start: 20101101

REACTIONS (3)
  - BRONCHITIS [None]
  - CONDITION AGGRAVATED [None]
  - CHRONIC OBSTRUCTIVE PULMONARY DISEASE [None]
